FAERS Safety Report 10409793 (Version 1)
Quarter: 2014Q3

REPORT INFORMATION
  Report Type: Spontaneous
  Country: US (occurrence: US)
  Receive Date: 20140826
  Receipt Date: 20140826
  Transmission Date: 20150326
  Serious: Yes (Hospitalization, Other)
  Sender: FDA-Public Use
  Company Number: US-GE HEALTHCARE MEDICAL DIAGNOSTICS-OSCN-PR-1408S-0137

PATIENT
  Age: 38 Year
  Sex: Male

DRUGS (7)
  1. IMBRUVICA [Suspect]
     Active Substance: IBRUTINIB
     Route: 048
  2. IMBRUVICA [Suspect]
     Active Substance: IBRUTINIB
     Route: 048
  3. OMNISCAN [Suspect]
     Active Substance: GADODIAMIDE
     Indication: DIAGNOSTIC PROCEDURE
  4. ISOVUE [Suspect]
     Active Substance: IOPAMIDOL
     Indication: PRODUCT USED FOR UNKNOWN INDICATION
     Route: 013
     Dates: start: 2014
  5. ISOVUE [Suspect]
     Active Substance: IOPAMIDOL
     Indication: ANGIOGRAM
  6. OMNISCAN [Suspect]
     Active Substance: GADODIAMIDE
     Indication: PRODUCT USED FOR UNKNOWN INDICATION
     Route: 042
     Dates: start: 20140723, end: 20140723
  7. IMBRUVICA [Suspect]
     Active Substance: IBRUTINIB
     Indication: CHRONIC LYMPHOCYTIC LEUKAEMIA
     Route: 048

REACTIONS (1)
  - Renal failure [Recovering/Resolving]

NARRATIVE: CASE EVENT DATE: 2014
